FAERS Safety Report 6849943-X (Version None)
Quarter: 2010Q3

REPORT INFORMATION
  Report Type: 
  Country: None (occurrence: None)
  Receive Date: 20100716
  Receipt Date: 20071005
  Transmission Date: 20110219
  Serious: No
  Sender: FDA-Public Use
  Company Number: US-PFIZER INC-2007085758

PATIENT
  Sex: Female
  Weight: 90.9 kg

DRUGS (3)
  1. CHANTIX [Suspect]
     Indication: SMOKING CESSATION THERAPY
     Route: 048
     Dates: start: 20070917
  2. PAXIL [Concomitant]
  3. ALBUTEROL [Concomitant]

REACTIONS (2)
  - ABNORMAL DREAMS [None]
  - PAIN IN EXTREMITY [None]
